FAERS Safety Report 10041259 (Version 1)
Quarter: 2014Q1

REPORT INFORMATION
  Report Type: Spontaneous
  Country: GB (occurrence: None)
  Receive Date: 20140325
  Receipt Date: 20140325
  Transmission Date: 20141002
  Serious: Yes (Other)
  Sender: FDA-Public Use
  Company Number: KAD201403-000338

PATIENT
  Age: 62 Year
  Sex: Male

DRUGS (5)
  1. RIBAVIRIN [Suspect]
     Indication: HEPATOCELLULAR CARCINOMA
     Route: 048
     Dates: start: 20131223
  2. PEGASYS [Suspect]
     Indication: HEPATOCELLULAR CARCINOMA
     Route: 058
     Dates: start: 20131223, end: 20140106
  3. SOVALDI [Suspect]
     Indication: HEPATOCELLULAR CARCINOMA
     Dosage: DAILY
     Route: 048
     Dates: start: 20131223
  4. LOPRESSOR [Concomitant]
  5. PROGRAF [Concomitant]

REACTIONS (2)
  - Jaundice [None]
  - Blood alkaline phosphatase increased [None]
